FAERS Safety Report 6117339-4 (Version None)
Quarter: 2009Q1

REPORT INFORMATION
  Report Type: 
  Country: None (occurrence: None)
  Receive Date: 20090314
  Receipt Date: 20090113
  Transmission Date: 20090719
  Serious: No
  Sender: FDA-Public Use
  Company Number: US-ABBOTT-09P-163-0497891-00

PATIENT
  Sex: Female
  Weight: 43.13 kg

DRUGS (6)
  1. HUMIRA [Suspect]
     Indication: RHEUMATOID ARTHRITIS
     Route: 058
     Dates: start: 20030215
  2. PREMPRO [Concomitant]
     Indication: MENOPAUSE
  3. METHOTREXATE [Concomitant]
     Indication: RHEUMATOID ARTHRITIS
     Dosage: 5 TABS
  4. DICLOFENAC SODIUM EC [Concomitant]
     Indication: RHEUMATOID ARTHRITIS
     Dates: start: 19970101
  5. FOLIC ACID [Concomitant]
     Indication: RHEUMATOID ARTHRITIS
  6. BUPROPION HCL [Concomitant]
     Indication: SMOKING CESSATION THERAPY

REACTIONS (4)
  - INCORRECT DOSE ADMINISTERED [None]
  - PNEUMONIA [None]
  - SINUSITIS [None]
  - WRONG TECHNIQUE IN DRUG USAGE PROCESS [None]
